FAERS Safety Report 7914195-6 (Version None)
Quarter: 2011Q4

REPORT INFORMATION
  Report Type: 
  Country: None (occurrence: None)
  Receive Date: 20111115
  Receipt Date: 20111115
  Transmission Date: 20120403
  Serious: Yes (Life-Threatening)
  Sender: FDA-Public Use
  Company Number: None

PATIENT
  Age: 48 Year
  Sex: Male
  Weight: 54.431 kg

DRUGS (1)
  1. LEVOFLOXACIN [Suspect]
     Indication: ANTIBIOTIC THERAPY
     Dosage: 250 MGS.
     Route: 048
     Dates: start: 20111104, end: 20111109

REACTIONS (10)
  - THINKING ABNORMAL [None]
  - URTICARIA [None]
  - NIGHTMARE [None]
  - PRURITUS [None]
  - INSOMNIA [None]
  - MOOD SWINGS [None]
  - HEAD TITUBATION [None]
  - IRRITABILITY [None]
  - NERVOUSNESS [None]
  - HALLUCINATION, AUDITORY [None]
